FAERS Safety Report 8882216 (Version 2)
Quarter: 2012Q4

REPORT INFORMATION
  Report Type: 
  Country: US (occurrence: US)
  Receive Date: 20121102
  Receipt Date: 20121226
  Transmission Date: 20130627
  Serious: Yes (Death)
  Sender: FDA-Public Use
  Company Number: US-PFIZER INC-2012273262

PATIENT
  Age: 61 Year
  Sex: Male

DRUGS (4)
  1. LIPITOR [Suspect]
     Indication: HYPERLIPIDEMIA
     Dosage: 10 mg, 1x/day
     Route: 048
  2. LANTUS [Concomitant]
     Dosage: 40 IU, daily
     Route: 058
  3. LISINOPRIL [Concomitant]
     Dosage: 20 mg, QD
     Route: 048
  4. METFORMIN [Concomitant]
     Dosage: 500 mg, BID
     Route: 048

REACTIONS (1)
  - Road traffic accident [Fatal]
